FAERS Safety Report 5802052-0 (Version None)
Quarter: 2008Q3

REPORT INFORMATION
  Report Type: 
  Country: None (occurrence: None)
  Receive Date: 20080707
  Receipt Date: 20080625
  Transmission Date: 20090109
  Serious: Yes (Hospitalization, Other)
  Sender: FDA-Public Use
  Company Number: US-PFIZER INC-2008053692

PATIENT
  Sex: Female
  Weight: 73.181 kg

DRUGS (6)
  1. DELTASONE [Suspect]
     Indication: RHEUMATOID ARTHRITIS
     Route: 048
     Dates: start: 20000101, end: 20020101
  2. CORTICOSTEROID NOS [Concomitant]
  3. PREMARIN [Concomitant]
  4. MOBIC [Concomitant]
     Indication: ARTHRITIS
  5. ETANERCEPT [Concomitant]
  6. CELEBREX [Concomitant]

REACTIONS (3)
  - BLOOD GLUCOSE INCREASED [None]
  - HYPERTENSION [None]
  - VEIN DISORDER [None]
